FAERS Safety Report 15695645 (Version 3)
Quarter: 2019Q1

REPORT INFORMATION
  Report Type: Spontaneous
  Country: US (occurrence: US)
  Receive Date: 20181206
  Receipt Date: 20190208
  Transmission Date: 20190417
  Serious: Yes (Hospitalization, Other)
  Sender: FDA-Public Use
  Company Number: US-BAYER-2018-220752

PATIENT
  Age: 63 Year
  Sex: Female

DRUGS (2)
  1. BETASERON [Suspect]
     Active Substance: INTERFERON BETA-1B
     Indication: MULTIPLE SCLEROSIS
     Dosage: UNK, QOD
  2. BETASERON [Suspect]
     Active Substance: INTERFERON BETA-1B
     Indication: MULTIPLE SCLEROSIS
     Dosage: UNK
     Dates: start: 20180820

REACTIONS (11)
  - Urinary tract infection [None]
  - Vomiting [Recovering/Resolving]
  - Nausea [Recovering/Resolving]
  - Dyspnoea [None]
  - Ureteric obstruction [None]
  - Mobility decreased [None]
  - Hydronephrosis [Recovering/Resolving]
  - Pain [None]
  - Vomiting [None]
  - Abdominal pain [Recovering/Resolving]
  - Complication associated with device [None]

NARRATIVE: CASE EVENT DATE: 20180707
